FAERS Safety Report 4863877-1 (Version None)
Quarter: 2005Q4

REPORT INFORMATION
  Report Type: 
  Country: None (occurrence: None)
  Receive Date: 20051222
  Receipt Date: 20051031
  Transmission Date: 20060501
  Serious: No
  Sender: FDA-Public Use
  Company Number: US-GLAXOSMITHKLINE-A0580392A

PATIENT
  Age: 65 Year
  Sex: Female

DRUGS (6)
  1. FLONASE [Suspect]
     Route: 045
  2. LIPITOR [Concomitant]
  3. NORVASC [Concomitant]
  4. ADVAIR DISKUS 250/50 [Concomitant]
  5. LASIX [Concomitant]
  6. DIOVAN [Concomitant]

REACTIONS (1)
  - EPISTAXIS [None]
